FAERS Safety Report 17718826 (Version 1)
Quarter: 2020Q2

REPORT INFORMATION
  Report Type: Spontaneous
  Country: DE (occurrence: DE)
  Receive Date: 20200428
  Receipt Date: 20200428
  Transmission Date: 20200714
  Serious: Yes (Life-Threatening, Hospitalization, Other)
  Sender: FDA-Public Use
  Company Number: DE-PFIZER INC-2020167358

PATIENT
  Age: 46 Year
  Sex: Female

DRUGS (7)
  1. PREGABALIN. [Suspect]
     Active Substance: PREGABALIN
     Dosage: 600 MG, DAILY 1-1-1-0
  2. LEVETIRACETAM. [Interacting]
     Active Substance: LEVETIRACETAM
     Dosage: 750 MG, 2X/DAY 1-0-1-0
  3. QUETIAPIN [Interacting]
     Active Substance: QUETIAPINE
     Dosage: 125 MG, DAILY, 1-1-1-2
  4. PANTOPRAZOLE [Concomitant]
     Active Substance: PANTOPRAZOLE
     Dosage: 40 MG, 1X/DAY, 1-0-0-0
  5. OXYCODON [Interacting]
     Active Substance: OXYCODONE
     Dosage: 160 MG, DAILY, 1-1-2-0
  6. ETORICOXIB. [Concomitant]
     Active Substance: ETORICOXIB
     Dosage: 30 MG, 2X/DAY 1-0-1-0
  7. RAMIPRIL. [Concomitant]
     Active Substance: RAMIPRIL
     Dosage: 5 MG, 1X/DAY 1-0-0-0

REACTIONS (3)
  - Labelled drug-drug interaction medication error [Unknown]
  - Aspartate aminotransferase increased [Unknown]
  - Fall [Unknown]

NARRATIVE: CASE EVENT DATE: 20200119
